FAERS Safety Report 7125283-9 (Version None)
Quarter: 2010Q4

REPORT INFORMATION
  Report Type: 
  Country: None (occurrence: None)
  Receive Date: 20101129
  Receipt Date: 20101116
  Transmission Date: 20110411
  Serious: Yes (Death, Hospitalization)
  Sender: FDA-Public Use
  Company Number: US-MYLANLABS-2010S1021010

PATIENT
  Sex: Female

DRUGS (1)
  1. ALLOPURINOL TAB [Suspect]
     Indication: GOUT
     Dates: start: 20060718

REACTIONS (3)
  - RASH [None]
  - SCAR [None]
  - SKIN REACTION [None]
